FAERS Safety Report 13049640 (Version 2)
Quarter: 2017Q2

REPORT INFORMATION
  Report Type: Report from Study
  Country: US (occurrence: US)
  Receive Date: 20161221
  Receipt Date: 20170518
  Transmission Date: 20170830
  Serious: Yes (Hospitalization, Other)
  Sender: FDA-Public Use
  Company Number: US-TAKEDA-2016MPI010721

PATIENT
  Age: 61 Year
  Sex: Male

DRUGS (15)
  1. PROCRIT [Concomitant]
     Active Substance: ERYTHROPOIETIN
     Dosage: UNK, QD
     Route: 048
     Dates: start: 20161011
  2. HECTOROL [Concomitant]
     Active Substance: DOXERCALCIFEROL
     Dosage: UNK, QD
     Route: 048
     Dates: start: 20161011
  3. LACTULOSE. [Concomitant]
     Active Substance: LACTULOSE
     Dosage: UNK
     Route: 065
     Dates: start: 20161025
  4. VENOFER [Concomitant]
     Active Substance: IRON SUCROSE
     Dosage: UNK, QD
     Route: 048
     Dates: start: 20161011
  5. HYDROXYZINE [Concomitant]
     Active Substance: HYDROXYZINE HYDROCHLORIDE
     Indication: PRURITUS
     Dosage: 25 MG, UNK
     Route: 048
     Dates: start: 20160628
  6. RESTORIL [Concomitant]
     Active Substance: TEMAZEPAM
     Dosage: 30 MG, QD
     Route: 065
     Dates: start: 20160616
  7. ASPIRIN                            /00346701/ [Concomitant]
     Active Substance: ASCORBIC ACID\ASPIRIN
     Dosage: UNK, QD
     Route: 048
     Dates: start: 20160105
  8. CIPROFLOXACIN. [Concomitant]
     Active Substance: CIPROFLOXACIN
     Dosage: 500 MG, UNK
     Route: 065
     Dates: start: 20161129
  9. FOLIC ACID. [Concomitant]
     Active Substance: FOLIC ACID
     Dosage: UNK, QD
     Route: 048
     Dates: start: 20161118
  10. RENVELA [Concomitant]
     Active Substance: SEVELAMER CARBONATE
     Dosage: 800 MG, UNK
     Route: 065
     Dates: start: 20160112
  11. VELCADE [Suspect]
     Active Substance: BORTEZOMIB
     Indication: PLASMA CELL MYELOMA
     Dosage: 2.5 MG, 1/WEEK
     Route: 058
  12. TUMS                               /00193601/ [Concomitant]
     Active Substance: CALCIUM CARBONATE\MAGNESIUM CARBONATE\MAGNESIUM TRISILICATE
     Dosage: UNK UNK, QD
     Route: 048
     Dates: start: 20160112
  13. DEXAMETHASONE. [Concomitant]
     Active Substance: DEXAMETHASONE
     Dosage: 40 MG, 1/WEEK
     Route: 065
     Dates: start: 20160112
  14. KLOR-CON [Concomitant]
     Active Substance: POTASSIUM CHLORIDE
     Dosage: 20 MEQ, QD
     Route: 048
     Dates: start: 20160506
  15. SODIUM BICARBONATE. [Concomitant]
     Active Substance: SODIUM BICARBONATE
     Dosage: 650 MG, TID
     Route: 048
     Dates: start: 20161117

REACTIONS (7)
  - Platelet count decreased [Unknown]
  - White blood cell count decreased [Unknown]
  - Myelodysplastic syndrome [Unknown]
  - Hospitalisation [Unknown]
  - Pain [Unknown]
  - Anaemia [Unknown]
  - Chronic kidney disease [Unknown]

NARRATIVE: CASE EVENT DATE: 20161215
